FAERS Safety Report 7388518-3 (Version None)
Quarter: 2011Q2

REPORT INFORMATION
  Report Type: 
  Country: None (occurrence: None)
  Receive Date: 20110401
  Receipt Date: 20110323
  Transmission Date: 20111010
  Serious: Yes (Hospitalization, Other)
  Sender: FDA-Public Use
  Company Number: DE-JNJFOC-20110309868

PATIENT
  Age: 62 Year
  Sex: Female

DRUGS (7)
  1. BRONCHICUM NOS [Concomitant]
     Route: 065
  2. PREDNISONE [Suspect]
     Indication: BRONCHITIS
     Route: 048
  3. PREDNISONE [Suspect]
     Route: 048
  4. DIOVANE [Concomitant]
     Route: 065
  5. ALBUTEROL SULFATE AUTOHALER [Concomitant]
     Route: 065
  6. TAVANIC [Suspect]
     Indication: BRONCHITIS
     Route: 048
  7. CO-DIOVAN [Concomitant]
     Route: 065

REACTIONS (6)
  - BLOOD PRESSURE INADEQUATELY CONTROLLED [None]
  - FEAR OF DEATH [None]
  - DEPRESSION [None]
  - ABDOMINAL PAIN [None]
  - ANXIETY [None]
  - HYPERSENSITIVITY [None]
